FAERS Safety Report 18912831 (Version 1)
Quarter: 2021Q1

REPORT INFORMATION
  Report Type: Spontaneous
  Country: US (occurrence: US)
  Receive Date: 20210219
  Receipt Date: 20210219
  Transmission Date: 20210420
  Serious: No
  Sender: FDA-Public Use
  Company Number: US-GLAXOSMITHKLINE-US2021036424

PATIENT
  Sex: Female

DRUGS (1)
  1. FLOVENT HFA [Suspect]
     Active Substance: FLUTICASONE PROPIONATE
     Indication: HYPERSENSITIVITY PNEUMONITIS
     Dosage: 1 PUFF(S), BID

REACTIONS (3)
  - Product use in unapproved indication [Unknown]
  - Product storage error [Unknown]
  - Wrong technique in product usage process [Unknown]
